FAERS Safety Report 8327524-9 (Version None)
Quarter: 2012Q2

REPORT INFORMATION
  Report Type: 
  Country: None (occurrence: None)
  Receive Date: 20120502
  Receipt Date: 20120424
  Transmission Date: 20120825
  Serious: Yes (Other)
  Sender: FDA-Public Use
  Company Number: US-BAYER-2011-072615

PATIENT
  Age: 38 Year
  Sex: Female
  Weight: 88 kg

DRUGS (1)
  1. YASMIN [Suspect]
     Dosage: UNK
     Dates: start: 20020101, end: 20090101

REACTIONS (5)
  - CHOLECYSTITIS CHRONIC [None]
  - PAIN [None]
  - GALLBLADDER DISORDER [None]
  - HYSTERECTOMY [None]
  - GALLBLADDER INJURY [None]
